FAERS Safety Report 4396631-8 (Version None)
Quarter: 2004Q3

REPORT INFORMATION
  Report Type: 
  Country: None (occurrence: None)
  Receive Date: 20040713
  Receipt Date: 20040713
  Transmission Date: 20050211
  Serious: Yes (Hospitalization)
  Sender: FDA-Public Use
  Company Number: None

PATIENT
  Age: 36 Year
  Sex: Male
  Weight: 88.54 kg

DRUGS (5)
  1. GEMCITABINE [Suspect]
     Indication: NON-HODGKIN'S LYMPHOMA
     Dosage: 1567 MG D1 AND D4 INTRAVENOUS
     Route: 042
     Dates: start: 20040430, end: 20040502
  2. CYCLOPHOSPHAMIDE [Suspect]
     Indication: NON-HODGKIN'S LYMPHOMA
     Dosage: 1567 MG D1 INTRAVENOUS
     Route: 042
     Dates: start: 20040430, end: 20040505
  3. ADRIAMYCIN PFS [Concomitant]
  4. VINCRISTINE [Concomitant]
  5. NEUPOGEN [Concomitant]

REACTIONS (7)
  - FEBRILE NEUTROPENIA [None]
  - HYPOKALAEMIA [None]
  - HYPONATRAEMIA [None]
  - HYPOVOLAEMIA [None]
  - MUCOSAL INFLAMMATION [None]
  - PHARYNGOLARYNGEAL PAIN [None]
  - RED BLOOD CELL COUNT DECREASED [None]
